FAERS Safety Report 14577832 (Version 2)
Quarter: 2018Q2

REPORT INFORMATION
  Report Type: Report from Study
  Country: US (occurrence: US)
  Receive Date: 20180227
  Receipt Date: 20180410
  Transmission Date: 20180711
  Serious: Yes (Other)
  Sender: FDA-Public Use
  Company Number: US-GLAXOSMITHKLINE-US2018GSK030982

PATIENT
  Sex: Female
  Weight: 111.57 kg

DRUGS (1)
  1. ALBIGLUTIDE [Suspect]
     Active Substance: ALBIGLUTIDE
     Indication: TYPE 2 DIABETES MELLITUS
     Dosage: 30 MG, WE
     Dates: end: 20160229

REACTIONS (8)
  - Thyroid mass [Unknown]
  - Labelled drug-disease interaction medication error [Unknown]
  - Goitre [Unknown]
  - RET gene mutation [Unknown]
  - Hypothyroidism [Unknown]
  - Autoimmune thyroiditis [Unknown]
  - Medullary thyroid cancer [Unknown]
  - Contraindicated drug prescribed [Unknown]

NARRATIVE: CASE EVENT DATE: 2009
